FAERS Safety Report 6836794-5 (Version None)
Quarter: 2010Q3

REPORT INFORMATION
  Report Type: 
  Country: None (occurrence: None)
  Receive Date: 20100708
  Receipt Date: 20100621
  Transmission Date: 20110219
  Serious: Yes (Hospitalization)
  Sender: FDA-Public Use
  Company Number: AE 2010-122

PATIENT
  Age: 16 Year
  Sex: Male

DRUGS (1)
  1. FAZACLO ODT [Suspect]
     Dosage: 200 MG DAILY PO
     Route: 048
     Dates: start: 20100505

REACTIONS (1)
  - ANGER [None]
